FAERS Safety Report 8917458 (Version 1)
Quarter: 2012Q4

REPORT INFORMATION
  Report Type: 
  Country: US (occurrence: US)
  Receive Date: 20121120
  Receipt Date: 20121120
  Transmission Date: 20130627
  Serious: Yes (Hospitalization, Other)
  Sender: FDA-Public Use
  Company Number: US-PFIZER INC-2012287329

PATIENT
  Age: 51 Year
  Sex: Male
  Weight: 102.04 kg

DRUGS (2)
  1. LYRICA [Suspect]
     Indication: FIBROMYALGIA
     Dosage: 50 mg, 1x/day
     Route: 048
  2. VIAGRA [Suspect]
     Indication: ERECTILE DYSFUNCTION
     Dosage: 50 mg, as needed
     Route: 048

REACTIONS (4)
  - Diabetes mellitus [Recovering/Resolving]
  - Glycosylated haemoglobin increased [Recovering/Resolving]
  - Chest pain [Recovering/Resolving]
  - Blood glucose fluctuation [Recovering/Resolving]
